FAERS Safety Report 7671587-0 (Version None)
Quarter: 2011Q3

REPORT INFORMATION
  Report Type: 
  Country: None (occurrence: None)
  Receive Date: 20110804
  Receipt Date: 20110729
  Transmission Date: 20111222
  Serious: Yes (Death)
  Sender: FDA-Public Use
  Company Number: 201110952

PATIENT
  Sex: Female

DRUGS (1)
  1. LIORESAL [Suspect]
     Indication: MUSCLE SPASTICITY
     Dosage: 32.7 MCG, DAILY, INTRATHECAL, BASAL R
     Route: 037

REACTIONS (2)
  - DEVICE CONNECTION ISSUE [None]
  - DEVICE DAMAGE [None]
